FAERS Safety Report 4324854-2 (Version None)
Quarter: 2004Q1

REPORT INFORMATION
  Report Type: 
  Country: None (occurrence: None)
  Receive Date: 20040323
  Receipt Date: 20040215
  Transmission Date: 20041129
  Serious: Yes (Hospitalization)
  Sender: FDA-Public Use
  Company Number: EM2004-0128

PATIENT
  Age: 46 Year
  Sex: Male

DRUGS (3)
  1. ALDESLEUKIN; CHIRON (ALDESLEUKIN; CHIRON CORPORATION) [Suspect]
     Indication: HIV INFECTION
     Dosage: 7.5 MIU, BID, SUBCUTAN.
     Route: 058
     Dates: start: 20031210, end: 20031214
  2. COMBIVIR [Concomitant]
  3. NELFINAVIR (NELFINAVIR) [Concomitant]

REACTIONS (3)
  - HYPOKALAEMIA [None]
  - MUSCLE CRAMP [None]
  - PAIN IN EXTREMITY [None]
